FAERS Safety Report 5013915-0 (Version None)
Quarter: 2006Q2

REPORT INFORMATION
  Report Type: 
  Country: None (occurrence: None)
  Receive Date: 20060530
  Receipt Date: 20060418
  Transmission Date: 20061013
  Serious: Yes (Disabling)
  Sender: FDA-Public Use
  Company Number: 2006PK00807

PATIENT
  Sex: Female

DRUGS (1)
  1. FASLODEX [Suspect]
     Indication: BREAST CANCER
     Dates: start: 20060301

REACTIONS (6)
  - HYPOAESTHESIA [None]
  - IMPAIRED HEALING [None]
  - MOVEMENT DISORDER [None]
  - OEDEMA [None]
  - SENSORY DISTURBANCE [None]
  - SHOULDER PAIN [None]
